FAERS Safety Report 26150082 (Version 1)
Quarter: 2025Q4

REPORT INFORMATION
  Report Type: Spontaneous
  Country: CN (occurrence: CN)
  Receive Date: 20251212
  Receipt Date: 20251212
  Transmission Date: 20260118
  Serious: Yes (Other)
  Sender: BAYER HEALTHCARE PHARMACEUTICALS INC.
  Company Number: CN-BAYER-2025A164021

PATIENT
  Age: 64 Year
  Sex: Male
  Weight: 80 kg

DRUGS (1)
  1. ULTRAVIST [Suspect]
     Active Substance: IOPROMIDE
     Indication: Angiogram
     Dosage: 60 ML, ONCE, 5ML/MIN, HIGH PRESSURE
     Route: 042
     Dates: start: 20250523, end: 20250523

REACTIONS (7)
  - Contrast media allergy [Recovering/Resolving]
  - Chest discomfort [None]
  - Pallor [None]
  - Hyperhidrosis [None]
  - Blood pressure decreased [Recovering/Resolving]
  - Blood glucose increased [None]
  - Respiratory rate increased [None]

NARRATIVE: CASE EVENT DATE: 20250523
